FAERS Safety Report 7768683-6 (Version None)
Quarter: 2011Q3

REPORT INFORMATION
  Report Type: 
  Country: None (occurrence: None)
  Receive Date: 20110922
  Receipt Date: 20110310
  Transmission Date: 20111222
  Serious: No
  Sender: FDA-Public Use
  Company Number: US-ASTRAZENECA-2010SE21063

PATIENT
  Age: 44 Year
  Sex: Male
  Weight: 95.3 kg

DRUGS (5)
  1. DIAZAPAM [Concomitant]
     Indication: ANXIETY
  2. TRAZODONE HCL [Concomitant]
     Indication: ANXIETY
  3. DEPAKOTE [Concomitant]
  4. SEROQUEL [Suspect]
     Route: 048
  5. SEROQUEL [Suspect]
     Indication: BIPOLAR DISORDER
     Route: 048
     Dates: start: 20090101

REACTIONS (5)
  - BLOOD TRIGLYCERIDES INCREASED [None]
  - HYPOMANIA [None]
  - INSOMNIA [None]
  - DRUG DOSE OMISSION [None]
  - ABDOMINAL DISCOMFORT [None]
